FAERS Safety Report 23124617 (Version 1)
Quarter: 2023Q4

REPORT INFORMATION
  Report Type: Spontaneous
  Country: CO (occurrence: CO)
  Receive Date: 20231030
  Receipt Date: 20231030
  Transmission Date: 20240110
  Serious: Yes (Hospitalization, Other)
  Sender: FDA-Public Use
  Company Number: CO-BAXTER-2023BAX033899

PATIENT
  Age: 50 Year
  Sex: Female
  Weight: 62.8 kg

DRUGS (4)
  1. DIANEAL [Suspect]
     Active Substance: CALCIUM CHLORIDE\DEXTROSE\MAGNESIUM CHLORIDE\SODIUM CHLORIDE\SODIUM LACTATE
     Indication: Peritoneal dialysis
     Dosage: 2 BAGS OF 6 LITERS
     Route: 033
     Dates: start: 200112, end: 20231007
  2. CLONIDINE [Concomitant]
     Active Substance: CLONIDINE
     Dosage: 150 - 1 (DETAILS NOT REPORTED) PER DAY
     Route: 065
  3. METOPROLOL [Concomitant]
     Active Substance: METOPROLOL
     Dosage: 1 PER DAY
     Route: 065
  4. CALCITRIOL [Concomitant]
     Active Substance: CALCITRIOL
     Dosage: 0.5 (UNITS NOT REPORTED), 2 TIMES PER DAY
     Route: 048

REACTIONS (2)
  - Intestinal obstruction [Not Recovered/Not Resolved]
  - Infection [Not Recovered/Not Resolved]

NARRATIVE: CASE EVENT DATE: 20231006
